FAERS Safety Report 8250349-X (Version None)
Quarter: 2012Q1

REPORT INFORMATION
  Report Type: 
  Country: None (occurrence: None)
  Receive Date: 20120319
  Receipt Date: 20100722
  Transmission Date: 20120608
  Serious: Yes (Other)
  Sender: FDA-Public Use
  Company Number: PHHY2010US48510

PATIENT
  Sex: Female

DRUGS (2)
  1. AMLODIPINE [Concomitant]
  2. TEKTURNA HCT [Suspect]
     Dosage: 300 /25 MG
     Dates: start: 20100623

REACTIONS (2)
  - OEDEMA PERIPHERAL [None]
  - HYPOTENSION [None]
